FAERS Safety Report 7427630-7 (Version None)
Quarter: 2011Q2

REPORT INFORMATION
  Report Type: 
  Country: None (occurrence: None)
  Receive Date: 20110421
  Receipt Date: 20110413
  Transmission Date: 20111010
  Serious: Yes (Hospitalization, Other)
  Sender: FDA-Public Use
  Company Number: US-ASTRAZENECA-2009UW11290

PATIENT
  Age: 671 Month
  Sex: Female

DRUGS (11)
  1. PROCRIT [Concomitant]
     Dosage: 8000 UNITS/ML Q WEEK
     Dates: start: 20070822
  2. SEROQUEL [Suspect]
     Route: 048
     Dates: start: 20070822
  3. ACTOS [Concomitant]
     Dates: start: 20070801
  4. METOPROLOL [Concomitant]
     Route: 048
     Dates: start: 20070822
  5. SEROQUEL [Suspect]
     Indication: INSOMNIA
     Route: 048
     Dates: start: 19990101, end: 20090101
  6. CLONAZEPAM [Concomitant]
     Dates: start: 20070822
  7. WARFARIN SODIUM [Concomitant]
     Dates: start: 20070822
  8. FOLIC ACID [Concomitant]
     Dates: start: 20070822
  9. NORTRIPTYLINE [Concomitant]
     Dates: start: 20070822
  10. TRAZODONE HCL [Concomitant]
     Dates: start: 20070822
  11. VITAMIN B-12 [Concomitant]
     Dosage: 1000 MCG/ML 100 MCG Q1MO
     Dates: start: 20070822

REACTIONS (6)
  - DIABETIC RETINOPATHY [None]
  - HYPOGLYCAEMIA [None]
  - NEUROGLYCOPENIA [None]
  - TYPE 2 DIABETES MELLITUS [None]
  - DIABETIC NEPHROPATHY [None]
  - SKIN ULCER [None]
